FAERS Safety Report 21452929 (Version 1)
Quarter: 2022Q4

REPORT INFORMATION
  Report Type: Spontaneous
  Country: US (occurrence: None)
  Receive Date: 20221012
  Receipt Date: 20221012
  Transmission Date: 20230113
  Serious: No
  Sender: FDA-Public Use
  Company Number: None

PATIENT
  Age: 73 Year
  Sex: Female
  Weight: 123.6 kg

DRUGS (12)
  1. IBRANCE [Suspect]
     Active Substance: PALBOCICLIB
     Indication: Breast cancer female
     Dosage: OTHER FREQUENCY : 3W, 1W OFF;?
     Route: 048
  2. ATORVASTATIN CALCIUM [Concomitant]
     Active Substance: ATORVASTATIN CALCIUM
  3. CALCIUM\VITAMIN D [Concomitant]
     Active Substance: CALCIUM\VITAMIN D
  4. CARTIA XT [Concomitant]
     Active Substance: DILTIAZEM HYDROCHLORIDE
  5. CHLORTHALIDONE [Concomitant]
     Active Substance: CHLORTHALIDONE
  6. DOXAZOSIN [Concomitant]
     Active Substance: DOXAZOSIN MESYLATE
  7. ELIQUIS [Concomitant]
     Active Substance: APIXABAN
  8. GABAPENTIN [Concomitant]
     Active Substance: GABAPENTIN
  9. LETROZOLE [Concomitant]
     Active Substance: LETROZOLE
  10. OMEPRAZOLE [Concomitant]
     Active Substance: OMEPRAZOLE
  11. VITAMIN B12 [Concomitant]
     Active Substance: CYANOCOBALAMIN
  12. METFORMIN HYDROCHLORIDE [Concomitant]
     Active Substance: METFORMIN HYDROCHLORIDE

REACTIONS (1)
  - White blood cell count increased [None]
